FAERS Safety Report 6655273-1 (Version None)
Quarter: 2010Q1

REPORT INFORMATION
  Report Type: 
  Country: None (occurrence: None)
  Receive Date: 20100319
  Receipt Date: 20090915
  Transmission Date: 20100710
  Serious: Yes (Hospitalization)
  Sender: FDA-Public Use
  Company Number: 2009SP023745

PATIENT
  Age: 32 Year
  Sex: Female
  Weight: 107.9561 kg

DRUGS (2)
  1. PEG-INTRON [Suspect]
     Indication: HEPATITIS C
     Dosage: 150 MCG; SC
     Route: 058
     Dates: start: 20090807
  2. RIBAVIRIN [Suspect]
     Indication: HEPATITIS C
     Dosage: PO
     Route: 048
     Dates: start: 20090807

REACTIONS (21)
  - ACCIDENTAL OVERDOSE [None]
  - BLOOD IRON DECREASED [None]
  - CHILLS [None]
  - DEHYDRATION [None]
  - DISTURBANCE IN ATTENTION [None]
  - DRY EYE [None]
  - DRY MOUTH [None]
  - DYSGEUSIA [None]
  - DYSPNOEA [None]
  - HAEMOGLOBIN DECREASED [None]
  - HYPERHIDROSIS [None]
  - HYPOPHAGIA [None]
  - LUNG INFECTION [None]
  - MALAISE [None]
  - ORAL DISCOMFORT [None]
  - ORAL PAIN [None]
  - PAIN [None]
  - RED BLOOD CELL COUNT DECREASED [None]
  - VOMITING [None]
  - WEIGHT DECREASED [None]
  - WHITE BLOOD CELL COUNT DECREASED [None]
